FAERS Safety Report 7546107-1 (Version None)
Quarter: 2011Q2

REPORT INFORMATION
  Report Type: 
  Country: None (occurrence: None)
  Receive Date: 20110614
  Receipt Date: 20110608
  Transmission Date: 20111010
  Serious: Yes (Death)
  Sender: FDA-Public Use
  Company Number: PHHY2011US47725

PATIENT
  Sex: Female

DRUGS (3)
  1. EXJADE [Suspect]
     Dosage: 1000 MG, QD
     Route: 048
  2. CHEMOTHERAPEUTICS NOS [Concomitant]
  3. ANTIBIOTICS [Concomitant]
     Route: 042

REACTIONS (3)
  - ACUTE MYELOID LEUKAEMIA [None]
  - INFECTION [None]
  - MULTI-ORGAN FAILURE [None]
